FAERS Safety Report 11145193 (Version 6)
Quarter: 2015Q3

REPORT INFORMATION
  Report Type: Spontaneous
  Country: US (occurrence: US)
  Receive Date: 20150526
  Receipt Date: 20150716
  Transmission Date: 20151125
  Serious: Yes (Hospitalization)
  Sender: FDA-Public Use
  Company Number: US-JNJFOC-20150514416

PATIENT
  Age: 83 Year
  Sex: Female
  Weight: 78.47 kg

DRUGS (13)
  1. EFFIENT [Suspect]
     Active Substance: PRASUGREL HYDROCHLORIDE
     Indication: PRODUCT USED FOR UNKNOWN INDICATION
     Route: 048
  2. ZESTRIL [Concomitant]
     Active Substance: LISINOPRIL
     Route: 048
     Dates: start: 20150304
  3. PLAVIX [Suspect]
     Active Substance: CLOPIDOGREL BISULFATE
     Indication: DEEP VEIN THROMBOSIS
     Route: 048
     Dates: start: 20150303
  4. XARELTO [Suspect]
     Active Substance: RIVAROXABAN
     Indication: STENT PLACEMENT
     Dosage: 05:14 PM
     Route: 048
     Dates: start: 20150301, end: 20150421
  5. POTASSIUM CHLORIDE. [Concomitant]
     Active Substance: POTASSIUM CHLORIDE
     Route: 048
     Dates: start: 20150303
  6. ASPIRIN. [Suspect]
     Active Substance: ASPIRIN
     Indication: DEEP VEIN THROMBOSIS
     Route: 048
     Dates: start: 201503
  7. ZOCOR [Concomitant]
     Active Substance: SIMVASTATIN
     Route: 048
     Dates: start: 20150323
  8. PRINIVIL [Concomitant]
     Active Substance: LISINOPRIL
     Route: 048
     Dates: start: 20150304
  9. LOPRESSOR [Concomitant]
     Active Substance: METOPROLOL TARTRATE
     Route: 048
     Dates: start: 20150303
  10. GLUCOPHAGE [Concomitant]
     Active Substance: METFORMIN HYDROCHLORIDE
     Route: 048
     Dates: start: 20140606
  11. XARELTO [Suspect]
     Active Substance: RIVAROXABAN
     Indication: DEEP VEIN THROMBOSIS
     Dosage: 05:14 PM
     Route: 048
     Dates: start: 20150301, end: 20150421
  12. ASPIRIN. [Suspect]
     Active Substance: ASPIRIN
     Indication: DEEP VEIN THROMBOSIS
     Route: 048
     Dates: start: 20150511
  13. LASIX [Concomitant]
     Active Substance: FUROSEMIDE
     Route: 048
     Dates: start: 20150213

REACTIONS (4)
  - Haemorrhagic anaemia [Recovering/Resolving]
  - Hyperkalaemia [Unknown]
  - Thrombocytopenia [Recovering/Resolving]
  - Diverticulum intestinal haemorrhagic [Recovering/Resolving]

NARRATIVE: CASE EVENT DATE: 201504
